FAERS Safety Report 4781042-3 (Version None)
Quarter: 2005Q3

REPORT INFORMATION
  Report Type: 
  Country: None (occurrence: None)
  Receive Date: 20050927
  Receipt Date: 20050927
  Transmission Date: 20060218
  Serious: Yes (Death, Life-Threatening)
  Sender: FDA-Public Use
  Company Number: None

PATIENT
  Sex: Male

DRUGS (3)
  1. ABCIXIMAB INJ 10 MG/ 5 ML SOLN 05/18/2005 [Suspect]
     Dosage: 24.2 MG ONCE IV
     Route: 042
     Dates: start: 20050518
  2. HEPARIN PER DASH PROTOCOL [Concomitant]
  3. ASPIRIN [Concomitant]

REACTIONS (1)
  - PULMONARY ALVEOLAR HAEMORRHAGE [None]
